FAERS Safety Report 8181250-8 (Version None)
Quarter: 2012Q1

REPORT INFORMATION
  Report Type: 
  Country: None (occurrence: None)
  Receive Date: 20120302
  Receipt Date: 20120222
  Transmission Date: 20120608
  Serious: Yes (Other)
  Sender: FDA-Public Use
  Company Number: US-BAYER-2011-088312

PATIENT
  Age: 25 Year
  Sex: Female

DRUGS (1)
  1. YAZ [Suspect]

REACTIONS (8)
  - ANHEDONIA [None]
  - SEPSIS [None]
  - PAIN [None]
  - DEEP VEIN THROMBOSIS [None]
  - CHOLECYSTITIS ACUTE [None]
  - GENERAL PHYSICAL HEALTH DETERIORATION [None]
  - ANXIETY [None]
  - EMOTIONAL DISTRESS [None]
